FAERS Safety Report 19158547 (Version 1)
Quarter: 2021Q2

REPORT INFORMATION
  Report Type: Spontaneous
  Country: CA (occurrence: CA)
  Receive Date: 20210419
  Receipt Date: 20210419
  Transmission Date: 20210717
  Serious: Yes (Hospitalization, Disabling)
  Sender: FDA-Public Use
  Company Number: None

PATIENT
  Age: 25 Year
  Sex: Female
  Weight: 53.55 kg

DRUGS (2)
  1. GADAVIST [Suspect]
     Active Substance: GADOBUTROL
     Indication: SCAN WITH CONTRAST
     Dates: start: 20210324, end: 20210324
  2. GADAVIST [Suspect]
     Active Substance: GADOBUTROL
     Indication: MAGNETIC RESONANCE IMAGING
     Dates: start: 20210324, end: 20210324

REACTIONS (18)
  - Throat tightness [None]
  - Cold sweat [None]
  - Nausea [None]
  - Photophobia [None]
  - Bone pain [None]
  - Pharyngeal swelling [None]
  - Fatigue [None]
  - Hyperacusis [None]
  - Contrast media toxicity [None]
  - Syncope [None]
  - Feeling abnormal [None]
  - Incorrect dose administered [None]
  - Malaise [None]
  - Headache [None]
  - Dizziness [None]
  - Dose calculation error [None]
  - Rash pruritic [None]
  - Arthralgia [None]

NARRATIVE: CASE EVENT DATE: 20210324
